FAERS Safety Report 14600635 (Version 3)
Quarter: 2018Q3

REPORT INFORMATION
  Report Type: Spontaneous
  Country: US (occurrence: US)
  Receive Date: 20180305
  Receipt Date: 20180712
  Transmission Date: 20181010
  Serious: Yes (Other)
  Sender: FDA-Public Use
  Company Number: US-PFIZER INC-2018049992

PATIENT
  Age: 37 Year
  Sex: Female

DRUGS (3)
  1. XELJANZ [Suspect]
     Active Substance: TOFACITINIB CITRATE
     Dosage: 30 MG, DAILY (5MG TABLETS SIX TIMES PER DAY)
  2. XELJANZ [Suspect]
     Active Substance: TOFACITINIB CITRATE
     Dosage: 20 MG, DAILY (QTY 120 / DAY SUPPLY 30)
  3. XELJANZ [Suspect]
     Active Substance: TOFACITINIB CITRATE
     Dosage: 30 MG, DAILY (QTY 180 / DAY SUPPLY 30)

REACTIONS (2)
  - Prescribed overdose [Unknown]
  - Colitis ulcerative [Unknown]
